FAERS Safety Report 25878697 (Version 1)
Quarter: 2025Q4

REPORT INFORMATION
  Report Type: Spontaneous
  Country: GB (occurrence: GB)
  Receive Date: 20251003
  Receipt Date: 20251003
  Transmission Date: 20260117
  Serious: Yes (Other)
  Sender: TEVA
  Company Number: GB-TEVA-340560ISR

PATIENT
  Age: 5 Month

DRUGS (1)
  1. PREDNISOLONE [Suspect]
     Active Substance: PREDNISOLONE
     Indication: Eye haemangioma
     Dosage: DOSAGE TEXT: 13 MG/DAY MAXIMUM
     Route: 048

REACTIONS (1)
  - Adrenal suppression [Unknown]
